FAERS Safety Report 23423490 (Version 4)
Quarter: 2025Q1

REPORT INFORMATION
  Report Type: Spontaneous
  Country: US (occurrence: US)
  Receive Date: 20240119
  Receipt Date: 20250227
  Transmission Date: 20250409
  Serious: Yes (Hospitalization, Other)
  Sender: PFIZER
  Company Number: US-PFIZER INC-PV202400005797

PATIENT
  Age: 85 Year
  Sex: Male
  Weight: 88.6 kg

DRUGS (1)
  1. XALKORI [Suspect]
     Active Substance: CRIZOTINIB
     Dosage: 250 MG, ONE CAPSULE 2 TIMES DAILY
     Route: 048

REACTIONS (1)
  - Cerebrovascular accident [Unknown]
